FAERS Safety Report 8239842-3 (Version None)
Quarter: 2012Q1

REPORT INFORMATION
  Report Type: 
  Country: None (occurrence: None)
  Receive Date: 20120328
  Receipt Date: 20120316
  Transmission Date: 20120608
  Serious: Yes (Other)
  Sender: FDA-Public Use
  Company Number: PHHY2012US025422

PATIENT
  Sex: Female
  Weight: 63 kg

DRUGS (3)
  1. GLEEVEC [Suspect]
     Dosage: 150 MG, DAILY (HALF DOSE)
  2. GLEEVEC [Suspect]
     Indication: GASTROINTESTINAL STROMAL TUMOUR
     Dosage: 300 MG, DAILY
     Route: 048
     Dates: start: 20110901
  3. GLEEVEC [Suspect]
     Dosage: 300 MG, DAILY
     Route: 048

REACTIONS (21)
  - LUNG NEOPLASM [None]
  - PLEURAL EFFUSION [None]
  - BLOOD PRESSURE SYSTOLIC INCREASED [None]
  - NEOPLASM PROGRESSION [None]
  - DIVERTICULUM INTESTINAL [None]
  - LYMPHADENOPATHY [None]
  - GASTROINTESTINAL OEDEMA [None]
  - OEDEMA PERIPHERAL [None]
  - ATELECTASIS [None]
  - AORTIC ARTERIOSCLEROSIS [None]
  - UTERINE ATROPHY [None]
  - METASTASES TO LIVER [None]
  - TOXICITY TO VARIOUS AGENTS [None]
  - BLOOD CREATININE INCREASED [None]
  - NEOPLASM MALIGNANT [None]
  - ASCITES [None]
  - THYROID NEOPLASM [None]
  - OSTEOARTHRITIS [None]
  - HAEMOGLOBIN DECREASED [None]
  - SCOLIOSIS [None]
  - OVARIAN ATROPHY [None]
